FAERS Safety Report 4380271-0 (Version None)
Quarter: 2004Q2

REPORT INFORMATION
  Report Type: 
  Country: None (occurrence: None)
  Receive Date: 20040618
  Receipt Date: 20040607
  Transmission Date: 20050107
  Serious: Yes (Other)
  Sender: FDA-Public Use
  Company Number: PHRM2004FR02070

PATIENT
  Age: 30 Year
  Sex: Male

DRUGS (1)
  1. CLOZAPINE [Suspect]
     Indication: ACCIDENTAL EXPOSURE
     Dosage: 200 MG, ONCE/SINGLE
     Route: 048
     Dates: start: 20040607, end: 20040607

REACTIONS (2)
  - ACCIDENTAL EXPOSURE [None]
  - HYPOTENSION [None]
